FAERS Safety Report 4522765-0 (Version None)
Quarter: 2004Q4

REPORT INFORMATION
  Report Type: 
  Country: None (occurrence: None)
  Receive Date: 20041208
  Receipt Date: 20041122
  Transmission Date: 20050328
  Serious: Yes (Other)
  Sender: FDA-Public Use
  Company Number: SP-2004-001952

PATIENT
  Age: 62 Year
  Sex: Female

DRUGS (3)
  1. OLMESARTAN [Suspect]
     Indication: HYPERTENSION
     Dosage: 20 MG QD PO
     Route: 048
     Dates: start: 20041108, end: 20041110
  2. CARVEDILOL [Concomitant]
  3. TORSEMIDE [Concomitant]

REACTIONS (1)
  - URTICARIA GENERALISED [None]
